FAERS Safety Report 7492494-2 (Version None)
Quarter: 2011Q2

REPORT INFORMATION
  Report Type: 
  Country: None (occurrence: None)
  Receive Date: 20110519
  Receipt Date: 20110510
  Transmission Date: 20111010
  Serious: Yes (Other)
  Sender: FDA-Public Use
  Company Number: US-PFIZER INC-2011105237

PATIENT
  Age: 6 Year
  Sex: Female

DRUGS (7)
  1. SULFAMETHOXAZOLE AND TRIMETHOPRIM [Concomitant]
  2. GATIFLOXACIN [Concomitant]
  3. MEROPENEM [Concomitant]
  4. LINEZOLID [Suspect]
     Indication: MENINGITIS
     Dosage: UNK
     Route: 065
  5. CIPROFLOXACIN [Concomitant]
  6. ESOMEPRAZOLE [Concomitant]
  7. AMIKACIN [Concomitant]

REACTIONS (7)
  - NEUROPATHY PERIPHERAL [None]
  - ELECTROCARDIOGRAM QT PROLONGED [None]
  - RENAL IMPAIRMENT [None]
  - CNS VENTRICULITIS [None]
  - CHORIORETINAL ATROPHY [None]
  - LACTIC ACIDOSIS [None]
  - DRUG RESISTANCE [None]
